FAERS Safety Report 4405234-8 (Version None)
Quarter: 2004Q3

REPORT INFORMATION
  Report Type: 
  Country: None (occurrence: None)
  Receive Date: 20040722
  Receipt Date: 20040722
  Transmission Date: 20050211
  Serious: No
  Sender: FDA-Public Use
  Company Number: None

PATIENT
  Age: 50 Year
  Sex: Female
  Weight: 68.0396 kg

DRUGS (1)
  1. LIPITOR [Suspect]
     Indication: BLOOD CHOLESTEROL INCREASED
     Dosage: 10 MG DAILY ORAL
     Route: 048
     Dates: start: 20030531, end: 20040618

REACTIONS (4)
  - GENERALISED OEDEMA [None]
  - MOVEMENT DISORDER [None]
  - MYALGIA [None]
  - SENSATION OF HEAVINESS [None]
